FAERS Safety Report 19642738 (Version 1)
Quarter: 2021Q3

REPORT INFORMATION
  Report Type: Report from Study
  Country: US (occurrence: US)
  Receive Date: 20210730
  Receipt Date: 20210730
  Transmission Date: 20211014
  Serious: Yes (Death)
  Sender: FDA-Public Use
  Company Number: US-ASTRAZENECA-2021A647636

PATIENT
  Sex: Male

DRUGS (16)
  1. MEDROL [Concomitant]
     Active Substance: METHYLPREDNISOLONE
  2. POTASSIUM CHLORIDE. [Concomitant]
     Active Substance: POTASSIUM CHLORIDE
  3. PREDNISONE. [Concomitant]
     Active Substance: PREDNISONE
  4. LOSARTAN. [Concomitant]
     Active Substance: LOSARTAN
  5. CALCIUM [Concomitant]
     Active Substance: CALCIUM
  6. HYDROXYZINE [Concomitant]
     Active Substance: HYDROXYZINE HYDROCHLORIDE
  7. ALLOPURINOL. [Concomitant]
     Active Substance: ALLOPURINOL
  8. IMBRUVICA [Concomitant]
     Active Substance: IBRUTINIB
  9. SUDAFED [Concomitant]
     Active Substance: PSEUDOEPHEDRINE HYDROCHLORIDE
  10. OMEGA3 [Concomitant]
  11. LASIX [Concomitant]
     Active Substance: FUROSEMIDE
  12. CEFDINIR. [Concomitant]
     Active Substance: CEFDINIR
  13. CALQUENCE [Suspect]
     Active Substance: ACALABRUTINIB
     Route: 048
  14. VITAMIN B12 [Concomitant]
     Active Substance: CYANOCOBALAMIN
  15. CENTRUM [Concomitant]
     Active Substance: VITAMINS
  16. ASPIRIN. [Concomitant]
     Active Substance: ASPIRIN

REACTIONS (1)
  - Death [Fatal]
